FAERS Safety Report 8424543-9 (Version None)
Quarter: 2012Q2

REPORT INFORMATION
  Report Type: 
  Country: None (occurrence: None)
  Receive Date: 20120605
  Receipt Date: 20120605
  Transmission Date: 20120825
  Serious: No
  Sender: FDA-Public Use
  Company Number: None

PATIENT
  Age: 47 Year
  Sex: Female
  Weight: 50.8029 kg

DRUGS (1)
  1. MIRENA [Suspect]
     Indication: CONTRACEPTION
     Dosage: 5 YEAR
     Dates: start: 20100910, end: 20120529

REACTIONS (3)
  - SWELLING FACE [None]
  - UNEVALUABLE EVENT [None]
  - URTICARIA [None]
